FAERS Safety Report 6445686-5 (Version None)
Quarter: 2009Q4

REPORT INFORMATION
  Report Type: 
  Country: None (occurrence: None)
  Receive Date: 20091118
  Receipt Date: 20091118
  Transmission Date: 20100525
  Serious: No
  Sender: FDA-Public Use
  Company Number: None

PATIENT
  Sex: Female
  Weight: 73.9363 kg

DRUGS (1)
  1. SIMVASTATIN [Suspect]
     Indication: BLOOD CHOLESTEROL INCREASED
     Dosage: 20MG AT EVERY BEDTIME PO
     Route: 048
     Dates: start: 20091114, end: 20091117

REACTIONS (2)
  - DYSKINESIA [None]
  - OROPHARYNGEAL PAIN [None]
